FAERS Safety Report 6480168-6 (Version None)
Quarter: 2009Q4

REPORT INFORMATION
  Report Type: 
  Country: None (occurrence: None)
  Receive Date: 20091208
  Receipt Date: 20091127
  Transmission Date: 20100525
  Serious: Yes (Hospitalization)
  Sender: FDA-Public Use
  Company Number: FR-NOVOPROD-301528

PATIENT
  Age: 78 Year
  Sex: Male

DRUGS (5)
  1. NOVONORM [Suspect]
     Indication: TYPE 2 DIABETES MELLITUS
     Dosage: 1 MG, UNK
     Route: 048
     Dates: start: 20091013, end: 20091030
  2. KALETRA                            /01399701/ [Suspect]
     Indication: HIV INFECTION
     Dosage: 4 PHARMACEUTICAL DOSES
     Route: 048
  3. KIVEXA [Suspect]
     Indication: HIV INFECTION
     Dosage: 900 MG, QD
     Route: 048
     Dates: start: 20091016, end: 20091030
  4. ZYLORIC                            /00003301/ [Concomitant]
     Indication: GOUT
     Dosage: UK
     Dates: start: 20091030, end: 20091031
  5. COLCHIMAX                          /00728901/ [Concomitant]
     Indication: GOUT
     Dosage: UNK
     Dates: start: 20090928, end: 20091021

REACTIONS (1)
  - CYTOLYTIC HEPATITIS [None]
